FAERS Safety Report 8790962 (Version 6)
Quarter: 2013Q4

REPORT INFORMATION
  Report Type: Spontaneous
  Country: GB (occurrence: None)
  Receive Date: 20120910
  Receipt Date: 20131008
  Transmission Date: 20140711
  Serious: Yes (Disabling)
  Sender: FDA-Public Use
  Company Number: AUR-APL-2012-03822

PATIENT
  Age: 71 Year
  Sex: Male

DRUGS (8)
  1. SIMVASTATIN (SIMVASTATIN) [Suspect]
     Indication: HYPERCHOLESTEROLAEMIA
     Route: 048
     Dates: start: 20120730, end: 20120802
  2. ATORVASTATIN (ATORVASTATIN) [Suspect]
     Indication: HYPERCHOLESTEROLAEMIA
     Route: 048
     Dates: start: 20120803, end: 20120807
  3. CLOPIDOGREL [Suspect]
     Indication: ANTIPLATELET THERAPY
     Route: 048
     Dates: start: 20120730
  4. EZETROL [Suspect]
     Indication: HYPERCHOLESTEROLAEMIA
     Route: 048
     Dates: start: 20120808, end: 20120810
  5. ASPIRIN (ACETYLSALICYLIC ACID) [Concomitant]
  6. FEXOFENADINE [Concomitant]
  7. FLUCLOXACILLIN (FLUCLOXACILLIN) [Concomitant]
  8. LACTULOSE SOLUTION (LACTULOSE) [Concomitant]

REACTIONS (3)
  - Cough [None]
  - Dyspnoea [None]
  - Disability [None]
